FAERS Safety Report 20731094 (Version 1)
Quarter: 2022Q2

REPORT INFORMATION
  Report Type: Spontaneous
  Country: US (occurrence: US)
  Receive Date: 20220420
  Receipt Date: 20220420
  Transmission Date: 20220720
  Serious: No
  Sender: FDA-Public Use
  Company Number: US-ELI_LILLY_AND_COMPANY-US202204009157

PATIENT
  Sex: Female

DRUGS (1)
  1. FORTEO [Suspect]
     Active Substance: TERIPARATIDE
     Indication: Thyroid disorder
     Dosage: UNK UNK, UNKNOWN
     Route: 065
     Dates: start: 202203, end: 20220418

REACTIONS (9)
  - Back pain [Unknown]
  - Dysstasia [Unknown]
  - Bone pain [Unknown]
  - Abdominal distension [Unknown]
  - Ear pain [Unknown]
  - Off label use [Unknown]
  - Abdominal pain upper [Unknown]
  - Arthralgia [Unknown]
  - Drug hypersensitivity [Unknown]
